FAERS Safety Report 5629501-5 (Version None)
Quarter: 2008Q1

REPORT INFORMATION
  Report Type: 
  Country: None (occurrence: None)
  Receive Date: 20080218
  Receipt Date: 20080211
  Transmission Date: 20080703
  Serious: Yes (Hospitalization)
  Sender: FDA-Public Use
  Company Number: CA-ASTRAZENECA-2008UW02224

PATIENT
  Age: 996 Month
  Sex: Female

DRUGS (8)
  1. ATACAND HCT [Suspect]
     Route: 048
     Dates: start: 20070101
  2. DILTIAZEM [Concomitant]
  3. AMITRIPTYLINE HCL [Concomitant]
  4. ATIVAN [Concomitant]
     Indication: INSOMNIA
     Route: 060
     Dates: start: 20080103
  5. PLAVIX [Concomitant]
     Indication: CEREBROVASCULAR ACCIDENT
     Route: 048
     Dates: start: 20080103
  6. PRAVACHOL [Concomitant]
  7. CITALOPRAM HYDROBROMIDE [Concomitant]
     Dates: start: 20071220
  8. ALBUTEROL [Concomitant]
     Indication: DYSPNOEA
     Route: 055
     Dates: start: 20080105, end: 20080201

REACTIONS (4)
  - CARDIAC FAILURE CONGESTIVE [None]
  - HYPONATRAEMIA [None]
  - INFLUENZA [None]
  - PNEUMONIA [None]
